FAERS Safety Report 10932641 (Version 1)
Quarter: 2015Q1

REPORT INFORMATION
  Report Type: Spontaneous
  Country: PT (occurrence: PT)
  Receive Date: 20150320
  Receipt Date: 20150320
  Transmission Date: 20150721
  Serious: Yes (Other)
  Sender: FDA-Public Use
  Company Number: PT-009507513-1503PRT009161

PATIENT
  Age: 70 Year
  Sex: Female

DRUGS (1)
  1. AERIUS [Suspect]
     Active Substance: DESLORATADINE
     Dosage: TWICE DAILY, IN THE MORNING AND AT NIGHT
     Route: 048
     Dates: start: 20150310

REACTIONS (3)
  - Malaise [Recovered/Resolved]
  - Syncope [Recovered/Resolved]
  - Heart rate increased [Recovered/Resolved]

NARRATIVE: CASE EVENT DATE: 20150317
